FAERS Safety Report 16918733 (Version 1)
Quarter: 2019Q4

REPORT INFORMATION
  Report Type: Spontaneous
  Country: US (occurrence: US)
  Receive Date: 20191014
  Receipt Date: 20191014
  Transmission Date: 20200122
  Serious: Yes (Other)
  Sender: FDA-Public Use
  Company Number: None

PATIENT
  Age: 56 Year
  Sex: Female
  Weight: 83.9 kg

DRUGS (2)
  1. MVASI [Concomitant]
     Active Substance: BEVACIZUMAB-AWWB
     Dates: start: 20191002, end: 20191002
  2. MVASI [Suspect]
     Active Substance: BEVACIZUMAB-AWWB
     Indication: CERVIX CARCINOMA STAGE IV
     Route: 042

REACTIONS (1)
  - Neuropathy peripheral [None]

NARRATIVE: CASE EVENT DATE: 20191002
